FAERS Safety Report 7392838-6 (Version None)
Quarter: 2011Q2

REPORT INFORMATION
  Report Type: 
  Country: None (occurrence: None)
  Receive Date: 20110404
  Receipt Date: 20110328
  Transmission Date: 20111010
  Serious: Yes (Hospitalization, Other)
  Sender: FDA-Public Use
  Company Number: US-PFIZER INC-2011068964

PATIENT
  Sex: Female
  Weight: 90.703 kg

DRUGS (5)
  1. CALCIUM [Concomitant]
     Dosage: UNK
  2. AROMASIN [Suspect]
     Indication: BREAST CANCER
     Dosage: DAILY
     Dates: start: 20080101
  3. FISH OIL [Concomitant]
  4. VITAMIN D [Concomitant]
     Dosage: UNK
  5. VICODIN [Concomitant]
     Dosage: UNK

REACTIONS (6)
  - NEOPLASM MALIGNANT [None]
  - STRESS [None]
  - LYMPHOEDEMA [None]
  - ALOPECIA [None]
  - FATIGUE [None]
  - PAIN [None]
